FAERS Safety Report 6448183-6 (Version None)
Quarter: 2009Q4

REPORT INFORMATION
  Report Type: 
  Country: None (occurrence: None)
  Receive Date: 20091120
  Receipt Date: 20091112
  Transmission Date: 20100525
  Serious: Yes (Other)
  Sender: FDA-Public Use
  Company Number: US-ASTRAZENECA-2009UW03752

PATIENT
  Age: 42 Year
  Sex: Male
  Weight: 81.6 kg

DRUGS (5)
  1. SEROQUEL [Suspect]
     Indication: DEPRESSION
     Dosage: 100 MG, 300 MG
     Route: 048
     Dates: start: 20041201, end: 20090401
  2. SEROQUEL [Suspect]
     Indication: ANXIETY
     Dosage: 100 MG, 300 MG
     Route: 048
     Dates: start: 20041201, end: 20090401
  3. SEROQUEL [Suspect]
     Indication: BIPOLAR DISORDER
     Dosage: 100 MG, 300 MG
     Route: 048
     Dates: start: 20041201, end: 20090401
  4. MIRTAZAPINE [Concomitant]
  5. HYDROXYZINE PAMOATE [Concomitant]

REACTIONS (9)
  - BLOOD CHOLESTEROL INCREASED [None]
  - BLOOD TRIGLYCERIDES INCREASED [None]
  - GASTROINTESTINAL DISORDER [None]
  - HYPERLIPIDAEMIA [None]
  - MUSCULOSKELETAL DISORDER [None]
  - PANCREATITIS ACUTE [None]
  - SKIN LACERATION [None]
  - SUICIDE ATTEMPT [None]
  - TYPE 2 DIABETES MELLITUS [None]
